FAERS Safety Report 7018460-9 (Version None)
Quarter: 2010Q3

REPORT INFORMATION
  Report Type: 
  Country: None (occurrence: None)
  Receive Date: 20100923
  Receipt Date: 20100925
  Transmission Date: 20110219
  Serious: Yes (Death, Hospitalization)
  Sender: FDA-Public Use
  Company Number: LEO-2010-00621

PATIENT
  Sex: Male
  Weight: 0.56 kg

DRUGS (2)
  1. INNOHEP [Suspect]
     Indication: ANTITHROMBIN III DEFICIENCY
     Dosage: 10 000-14 000 IU (1 IN 1 D), TRANSPLACENTAL
     Route: 064
     Dates: start: 20090125, end: 20090520
  2. FRAGMIN [Concomitant]

REACTIONS (7)
  - APGAR SCORE LOW [None]
  - BREECH PRESENTATION [None]
  - CONGENITAL CHOROID PLEXUS CYST [None]
  - DEATH NEONATAL [None]
  - INTRAVENTRICULAR HAEMORRHAGE NEONATAL [None]
  - MATERNAL DRUGS AFFECTING FOETUS [None]
  - PREMATURE BABY [None]
